FAERS Safety Report 23952154 (Version 6)
Quarter: 2025Q3

REPORT INFORMATION
  Report Type: Report from Study
  Country: CA (occurrence: CA)
  Receive Date: 20240607
  Receipt Date: 20250803
  Transmission Date: 20251020
  Serious: Yes (Life-Threatening, Hospitalization, Other)
  Sender: ALEXION PHARMACEUTICALS
  Company Number: 2024A126985

PATIENT
  Sex: Female

DRUGS (6)
  1. BENRALIZUMAB [Suspect]
     Active Substance: BENRALIZUMAB
     Indication: Asthma
  2. BENRALIZUMAB [Suspect]
     Active Substance: BENRALIZUMAB
  3. SYMBICORT [Concomitant]
     Active Substance: BUDESONIDE\FORMOTEROL FUMARATE DIHYDRATE
     Dosage: 200 II QID
     Route: 065
  4. INCRUSE ELLIPTA [Concomitant]
     Active Substance: UMECLIDINIUM BROMIDE
     Route: 065
  5. ALLOPURINOL [Concomitant]
     Active Substance: ALLOPURINOL
     Route: 065
  6. HYDROCHLOROTHIAZIDE\TELMISARTAN [Concomitant]
     Active Substance: HYDROCHLOROTHIAZIDE\TELMISARTAN
     Route: 065

REACTIONS (15)
  - Bile duct cancer [Unknown]
  - Hallucination [Unknown]
  - Pneumonia [Unknown]
  - Pleural effusion [Unknown]
  - Shock [Unknown]
  - Dehydration [Unknown]
  - Blood sodium increased [Unknown]
  - Blood chloride increased [Unknown]
  - Eating disorder [Unknown]
  - Asthenia [Unknown]
  - Hypophagia [Unknown]
  - Gait inability [Unknown]
  - Confusional state [Unknown]
  - Abnormal loss of weight [Unknown]
  - Oedema peripheral [Unknown]
